FAERS Safety Report 7584575-X (Version None)
Quarter: 2011Q2

REPORT INFORMATION
  Report Type: 
  Country: None (occurrence: None)
  Receive Date: 20110630
  Receipt Date: 20110618
  Transmission Date: 20111010
  Serious: Yes (Hospitalization)
  Sender: FDA-Public Use
  Company Number: US-ELI_LILLY_AND_COMPANY-US201101003123

PATIENT
  Sex: Female

DRUGS (1)
  1. FORTEO [Suspect]
     Indication: OSTEOPOROSIS
     Route: 065

REACTIONS (6)
  - BRONCHITIS [None]
  - INFLUENZA [None]
  - ALOPECIA [None]
  - DRUG DOSE OMISSION [None]
  - PAIN [None]
  - HOSPITALISATION [None]
